FAERS Safety Report 25503553 (Version 1)
Quarter: 2025Q3

REPORT INFORMATION
  Report Type: Spontaneous
  Country: GB (occurrence: GB)
  Receive Date: 20250702
  Receipt Date: 20250702
  Transmission Date: 20251020
  Serious: Yes (Hospitalization)
  Sender: MYLAN
  Company Number: GB-MYLANLABS-2025M1054553

PATIENT
  Age: 7 Decade
  Sex: Female

DRUGS (28)
  1. DEXAMETHASONE [Suspect]
     Active Substance: DEXAMETHASONE
     Indication: Intracranial pressure increased
  2. DEXAMETHASONE [Suspect]
     Active Substance: DEXAMETHASONE
     Route: 065
  3. DEXAMETHASONE [Suspect]
     Active Substance: DEXAMETHASONE
     Route: 065
  4. DEXAMETHASONE [Suspect]
     Active Substance: DEXAMETHASONE
  5. LEVETIRACETAM [Suspect]
     Active Substance: LEVETIRACETAM
     Indication: Seizure
  6. LEVETIRACETAM [Suspect]
     Active Substance: LEVETIRACETAM
     Route: 058
  7. LEVETIRACETAM [Suspect]
     Active Substance: LEVETIRACETAM
     Route: 058
  8. LEVETIRACETAM [Suspect]
     Active Substance: LEVETIRACETAM
  9. OXYCODONE [Suspect]
     Active Substance: OXYCODONE
     Indication: Pain
  10. OXYCODONE [Suspect]
     Active Substance: OXYCODONE
     Route: 058
  11. OXYCODONE [Suspect]
     Active Substance: OXYCODONE
     Route: 058
  12. OXYCODONE [Suspect]
     Active Substance: OXYCODONE
  13. OMEPRAZOLE [Suspect]
     Active Substance: OMEPRAZOLE
     Indication: Prophylaxis
     Dosage: 40 MILLIGRAM, QD (OFF LABEL OMEPRAZOLE 40MG SUBCUTANEOUS INFUSION IN SODIUM CHLORIDE GIVEN OVER....
  14. OMEPRAZOLE [Suspect]
     Active Substance: OMEPRAZOLE
     Dosage: 40 MILLIGRAM, QD (OFF LABEL OMEPRAZOLE 40MG SUBCUTANEOUS INFUSION IN SODIUM CHLORIDE GIVEN OVER....
     Route: 058
  15. OMEPRAZOLE [Suspect]
     Active Substance: OMEPRAZOLE
     Dosage: 40 MILLIGRAM, QD (OFF LABEL OMEPRAZOLE 40MG SUBCUTANEOUS INFUSION IN SODIUM CHLORIDE GIVEN OVER....
     Route: 058
  16. OMEPRAZOLE [Suspect]
     Active Substance: OMEPRAZOLE
     Dosage: 40 MILLIGRAM, QD (OFF LABEL OMEPRAZOLE 40MG SUBCUTANEOUS INFUSION IN SODIUM CHLORIDE GIVEN OVER....
  17. MIDAZOLAM [Suspect]
     Active Substance: MIDAZOLAM
     Indication: Pain
  18. MIDAZOLAM [Suspect]
     Active Substance: MIDAZOLAM
     Route: 058
  19. MIDAZOLAM [Suspect]
     Active Substance: MIDAZOLAM
     Route: 058
  20. MIDAZOLAM [Suspect]
     Active Substance: MIDAZOLAM
  21. SODIUM CHLORIDE [Concomitant]
     Active Substance: SODIUM CHLORIDE
     Indication: Vehicle solution use
     Dosage: 100 MILLILITER, QD (OMEPRAZOLE SUBCUTANEOUS INFUSION IN 100ML 0.9% SODIUM CHLORIDE GIVEN OVER?
  22. SODIUM CHLORIDE [Concomitant]
     Active Substance: SODIUM CHLORIDE
     Dosage: 100 MILLILITER, QD (OMEPRAZOLE SUBCUTANEOUS INFUSION IN 100ML 0.9% SODIUM CHLORIDE GIVEN OVER?
     Route: 058
  23. SODIUM CHLORIDE [Concomitant]
     Active Substance: SODIUM CHLORIDE
     Dosage: 100 MILLILITER, QD (OMEPRAZOLE SUBCUTANEOUS INFUSION IN 100ML 0.9% SODIUM CHLORIDE GIVEN OVER?
     Route: 058
  24. SODIUM CHLORIDE [Concomitant]
     Active Substance: SODIUM CHLORIDE
     Dosage: 100 MILLILITER, QD (OMEPRAZOLE SUBCUTANEOUS INFUSION IN 100ML 0.9% SODIUM CHLORIDE GIVEN OVER?
  25. FAMOTIDINE [Concomitant]
     Active Substance: FAMOTIDINE
     Indication: Prophylaxis
  26. FAMOTIDINE [Concomitant]
     Active Substance: FAMOTIDINE
     Route: 048
  27. FAMOTIDINE [Concomitant]
     Active Substance: FAMOTIDINE
     Route: 048
  28. FAMOTIDINE [Concomitant]
     Active Substance: FAMOTIDINE

REACTIONS (2)
  - Drug ineffective [Unknown]
  - Off label use [Unknown]
